FAERS Safety Report 8829076 (Version 1)
Quarter: 2012Q4

REPORT INFORMATION
  Report Type: 
  Country: GB (occurrence: GB)
  Receive Date: 20121008
  Receipt Date: 20121008
  Transmission Date: 20130627
  Serious: Yes (Other)
  Sender: FDA-Public Use
  Company Number: GB-ABBOTT-12P-167-0990070-00

PATIENT
  Age: 72 Year
  Sex: Female
  Weight: 66.7 kg

DRUGS (3)
  1. HUMIRA [Suspect]
     Indication: RHEUMATOID ARTHRITIS
     Dates: start: 20060118, end: 20120914
  2. LEFLUNOMIDE [Concomitant]
     Indication: RHEUMATOID ARTHRITIS
     Dates: start: 2005, end: 20120914
  3. SULPHASALAZINE [Concomitant]
     Indication: PRODUCT USED FOR UNKNOWN INDICATION
     Dates: start: 2006

REACTIONS (2)
  - Rectal polyp [Not Recovered/Not Resolved]
  - Rectal adenocarcinoma [Not Recovered/Not Resolved]
